FAERS Safety Report 13825357 (Version 1)
Quarter: 2017Q3

REPORT INFORMATION
  Report Type: Spontaneous
  Country: HU (occurrence: HU)
  Receive Date: 20170802
  Receipt Date: 20170802
  Transmission Date: 20171127
  Serious: Yes (Other)
  Sender: FDA-Public Use
  Company Number: HU-TEVA-791554ISR

PATIENT
  Age: 35 Year
  Sex: Female

DRUGS (2)
  1. FOLIC ACID. [Suspect]
     Active Substance: FOLIC ACID
     Indication: ANAEMIA
     Dates: start: 2014
  2. VITAMINE B12 [Suspect]
     Active Substance: CYANOCOBALAMIN
     Indication: ANAEMIA
     Dates: start: 2014

REACTIONS (5)
  - Caesarean section [Unknown]
  - Live birth [Unknown]
  - Thrombocytopenia [Unknown]
  - Drug ineffective [Unknown]
  - Maternal exposure during pregnancy [Unknown]

NARRATIVE: CASE EVENT DATE: 2014
